FAERS Safety Report 18108864 (Version 2)
Quarter: 2020Q3

REPORT INFORMATION
  Report Type: Report from Study
  Country: US (occurrence: US)
  Receive Date: 20200804
  Receipt Date: 20200812
  Transmission Date: 20201103
  Serious: Yes (Hospitalization)
  Sender: FDA-Public Use
  Company Number: US-HORIZON-RAV-0225-2020

PATIENT
  Age: 10 Day
  Sex: Male
  Weight: 4.59 kg

DRUGS (2)
  1. RAVICTI [Suspect]
     Active Substance: GLYCEROL PHENYLBUTYRATE
     Indication: ARGININOSUCCINATE LYASE DEFICIENCY
     Dosage: REDUCED TO 0.3ML BY MOUTH 3 TIMES
     Route: 048
     Dates: start: 20200717
  2. ARGININE [Concomitant]
     Active Substance: ARGININE

REACTIONS (4)
  - Lethargy [Recovered/Resolved]
  - Somnolence [Recovered/Resolved]
  - Decreased appetite [Recovered/Resolved]
  - Fatigue [Recovered/Resolved]

NARRATIVE: CASE EVENT DATE: 20200717
